FAERS Safety Report 17975053 (Version 1)
Quarter: 2020Q3

REPORT INFORMATION
  Report Type: Spontaneous
  Country: FR (occurrence: FR)
  Receive Date: 20200702
  Receipt Date: 20200702
  Transmission Date: 20201103
  Serious: Yes (Death, Hospitalization)
  Sender: FDA-Public Use
  Company Number: FR-TEVA-2020-FR-1794082

PATIENT
  Age: 25 Year
  Sex: Female
  Weight: 61 kg

DRUGS (4)
  1. VINCRISTINE (SULFATE DE) [Suspect]
     Active Substance: VINCRISTINE SULFATE
     Indication: ACUTE LYMPHOCYTIC LEUKAEMIA
     Dosage: 2 MICROGRAM
     Route: 042
     Dates: start: 20200513, end: 20200520
  2. ASPARAGINASE [Suspect]
     Active Substance: ASPARAGINASE
     Indication: ACUTE LYMPHOCYTIC LEUKAEMIA
     Dosage: 2 MICROGRAM
     Route: 042
     Dates: start: 20200520, end: 20200524
  3. ENDOXAN [Suspect]
     Active Substance: CYCLOPHOSPHAMIDE
     Indication: ACUTE LYMPHOCYTIC LEUKAEMIA
     Dosage: 1220 MICROGRAM
     Route: 042
     Dates: start: 20200513, end: 20200513
  4. DAUNORUBICINE [Suspect]
     Active Substance: DAUNORUBICIN
     Indication: ACUTE LYMPHOCYTIC LEUKAEMIA
     Dosage: 82.5 MICROGRAM
     Route: 042
     Dates: start: 20200513, end: 20200515

REACTIONS (6)
  - Cardiac arrest [Fatal]
  - Cor pulmonale acute [Fatal]
  - Hypoalbuminaemia [Fatal]
  - Ventricular dysfunction [Fatal]
  - Prothrombin time shortened [Fatal]
  - Febrile bone marrow aplasia [Fatal]

NARRATIVE: CASE EVENT DATE: 20200520
